FAERS Safety Report 4872656-0 (Version None)
Quarter: 2006Q1

REPORT INFORMATION
  Report Type: 
  Country: None (occurrence: None)
  Receive Date: 20060105
  Receipt Date: 20060102
  Transmission Date: 20060701
  Serious: Yes (Death, Other)
  Sender: FDA-Public Use
  Company Number: 2006UW00044

PATIENT
  Sex: Male

DRUGS (1)
  1. IRESSA [Suspect]
     Route: 048

REACTIONS (1)
  - DEATH [None]
